FAERS Safety Report 6040503-X (Version None)
Quarter: 2009Q1

REPORT INFORMATION
  Report Type: 
  Country: None (occurrence: None)
  Receive Date: 20090116
  Receipt Date: 20080325
  Transmission Date: 20090719
  Serious: No
  Sender: FDA-Public Use
  Company Number: US-BRISTOL-MYERS SQUIBB COMPANY-14126148

PATIENT
  Age: 56 Year
  Sex: Female

DRUGS (2)
  1. ABILIFY [Suspect]
     Dosage: TAKEN TEN DAYS AGO.
     Dates: start: 20080301
  2. WELLBUTRIN [Concomitant]

REACTIONS (3)
  - MANIA [None]
  - SLEEP DISORDER [None]
  - TACHYPHRENIA [None]
